FAERS Safety Report 7131462-7 (Version None)
Quarter: 2010Q4

REPORT INFORMATION
  Report Type: 
  Country: None (occurrence: None)
  Receive Date: 20101201
  Receipt Date: 20101123
  Transmission Date: 20110411
  Serious: Yes (Other)
  Sender: FDA-Public Use
  Company Number: AU-PFIZER INC-2010158682

PATIENT
  Age: 61 Year
  Sex: Female

DRUGS (7)
  1. CELEBREX [Suspect]
     Indication: OSTEOARTHRITIS
     Dosage: 200 MG, 1X/DAY
     Dates: start: 20101101, end: 20101101
  2. CELEBREX [Suspect]
  3. LIPITOR [Concomitant]
  4. MICARDIS HCT [Concomitant]
  5. DIAFORMIN [Concomitant]
  6. GLICLAZIDE [Concomitant]
  7. ZOLOFT [Concomitant]

REACTIONS (3)
  - FATIGUE [None]
  - HEART RATE DECREASED [None]
  - HYPOTENSION [None]
